FAERS Safety Report 16474297 (Version 5)
Quarter: 2019Q3

REPORT INFORMATION
  Report Type: Spontaneous
  Country: US (occurrence: US)
  Receive Date: 20190625
  Receipt Date: 20190829
  Transmission Date: 20191004
  Serious: No
  Sender: FDA-Public Use
  Company Number: US-PFIZER INC-2019260409

PATIENT
  Age: 55 Year
  Sex: Female

DRUGS (2)
  1. CHANTIX [Suspect]
     Active Substance: VARENICLINE TARTRATE
     Indication: SMOKING CESSATION THERAPY
     Dosage: 1 MG, DAILY
     Route: 048
     Dates: start: 20190412
  2. CHANTIX [Suspect]
     Active Substance: VARENICLINE TARTRATE
     Dosage: 1 MG, 2X/DAY[TAKE 1 TAB TWICE A DAY UG FOR TOBACCO CESSATION]

REACTIONS (5)
  - Hypersomnia [Unknown]
  - Irritability [Unknown]
  - Hormone level abnormal [Unknown]
  - Aphonia [Unknown]
  - Headache [Unknown]
